FAERS Safety Report 19475442 (Version 1)
Quarter: 2021Q2

REPORT INFORMATION
  Report Type: Spontaneous
  Country: GB (occurrence: GB)
  Receive Date: 20210630
  Receipt Date: 20210630
  Transmission Date: 20210717
  Serious: Yes (Life-Threatening, Other)
  Sender: FDA-Public Use
  Company Number: GB-BEH-2021133343

PATIENT
  Age: 36 Year
  Sex: Female
  Weight: 72 kg

DRUGS (1)
  1. HUMAN IMMUNOGLOBULIN (INN) [Suspect]
     Active Substance: HUMAN IMMUNOGLOBULIN G
     Indication: PRODUCT USED FOR UNKNOWN INDICATION
     Route: 065

REACTIONS (11)
  - Thrombocytosis [Unknown]
  - Chest discomfort [Unknown]
  - Dizziness [Unknown]
  - Thrombosis [Recovering/Resolving]
  - Dyspnoea [Unknown]
  - Exercise tolerance decreased [Unknown]
  - Circulatory collapse [Unknown]
  - Vomiting [Unknown]
  - Activated partial thromboplastin time prolonged [Unknown]
  - Chest pain [Unknown]
  - Neutrophilia [Unknown]

NARRATIVE: CASE EVENT DATE: 20210611
